FAERS Safety Report 21695384 (Version 4)
Quarter: 2025Q4

REPORT INFORMATION
  Report Type: Report from Study
  Country: MX (occurrence: MX)
  Receive Date: 20221207
  Receipt Date: 20251111
  Transmission Date: 20260117
  Serious: Yes (Death, Hospitalization)
  Sender: NOVARTIS
  Company Number: MX-002147023-NVSC2022MX283791

PATIENT
  Age: 17 Year
  Sex: Male
  Weight: 54 kg

DRUGS (4)
  1. ELTROMBOPAG OLAMINE [Suspect]
     Active Substance: ELTROMBOPAG OLAMINE
     Indication: Platelet disorder
     Dosage: 4 DOSAGE FORM (25 MG), QD
     Route: 048
     Dates: start: 2022, end: 20221111
  2. ELTROMBOPAG OLAMINE [Suspect]
     Active Substance: ELTROMBOPAG OLAMINE
     Indication: Bone marrow failure
     Dosage: 2 (25 MG) Q24H
     Route: 048
     Dates: start: 202206, end: 20221111
  3. EXJADE [Suspect]
     Active Substance: DEFERASIROX
     Indication: Iron deficiency
     Dosage: 4 (250 MG), Q24H
     Route: 048
     Dates: start: 202204, end: 202209
  4. CYCLOSPORINE [Suspect]
     Active Substance: CYCLOSPORINE
     Indication: Immunosuppressant drug therapy
     Dosage: 1 ML, Q12H (SYRUP)
     Route: 048
     Dates: start: 202205, end: 202211

REACTIONS (5)
  - Bone marrow failure [Fatal]
  - Condition aggravated [Fatal]
  - Vomiting [Unknown]
  - Pyrexia [Unknown]
  - Product use in unapproved indication [Unknown]

NARRATIVE: CASE EVENT DATE: 20220601
